FAERS Safety Report 12904704 (Version 1)
Quarter: 2016Q4

REPORT INFORMATION
  Report Type: Spontaneous
  Country: US (occurrence: US)
  Receive Date: 20161102
  Receipt Date: 20161102
  Transmission Date: 20170207
  Serious: Yes (Other)
  Sender: FDA-Public Use
  Company Number: ALCN2016US007316

PATIENT
  Sex: Male

DRUGS (1)
  1. SYSTANE LUBRICANT [Suspect]
     Active Substance: POLYETHYLENE GLYCOL 400\PROPYLENE GLYCOL
     Indication: DRY EYE
     Dosage: 1 GTT, QD
     Route: 047

REACTIONS (5)
  - Vertigo [Recovered/Resolved]
  - Dizziness [Recovered/Resolved]
  - Retching [Unknown]
  - Nausea [Recovered/Resolved]
  - Fall [Unknown]
